FAERS Safety Report 4286623-1 (Version None)
Quarter: 2004Q1

REPORT INFORMATION
  Report Type: 
  Country: None (occurrence: None)
  Receive Date: 20040206
  Receipt Date: 20040129
  Transmission Date: 20041129
  Serious: Yes (Hospitalization)
  Sender: FDA-Public Use
  Company Number: PHBS2004BE01645

PATIENT
  Age: 48 Year
  Sex: Male

DRUGS (3)
  1. LAMISIL [Suspect]
     Indication: FUNGAL SKIN INFECTION
     Dosage: 250 MG/D
     Route: 048
     Dates: start: 20020101, end: 20020101
  2. FELDENE [Concomitant]
     Indication: GOUT
     Route: 065
  3. PARACETAMOL [Concomitant]
     Indication: GOUT
     Route: 065

REACTIONS (2)
  - ABDOMINAL PAIN [None]
  - PANCREATITIS [None]
